FAERS Safety Report 6649298-X (Version None)
Quarter: 2010Q1

REPORT INFORMATION
  Report Type: 
  Country: None (occurrence: None)
  Receive Date: 20100324
  Receipt Date: 20100319
  Transmission Date: 20100710
  Serious: Yes (Death)
  Sender: FDA-Public Use
  Company Number: PHHY2010JP16690

PATIENT

DRUGS (1)
  1. DIOVAN [Suspect]
     Dosage: 40 MG AND 80 MG TABLETS (EXACT DAILY DOSE UNSPECIFIED)
     Route: 048

REACTIONS (2)
  - CARDIAC FAILURE [None]
  - RENAL FAILURE [None]
